FAERS Safety Report 10169538 (Version 2)
Quarter: 2014Q3

REPORT INFORMATION
  Report Type: Report from Study
  Country: JP (occurrence: JP)
  Receive Date: 20140513
  Receipt Date: 20140911
  Transmission Date: 20150326
  Serious: Yes (Hospitalization, Other)
  Sender: FDA-Public Use
  Company Number: JP-GILEAD-2014-0101993

PATIENT
  Age: 42 Year
  Sex: Female
  Weight: 47 kg

DRUGS (21)
  1. GLIVEC [Suspect]
     Active Substance: IMATINIB MESYLATE
     Indication: PRODUCT USED FOR UNKNOWN INDICATION
     Dosage: 50 MG, UNK
     Route: 048
     Dates: start: 20110806
  2. GLIVEC [Suspect]
     Active Substance: IMATINIB MESYLATE
     Dosage: 100 MG, UNK
     Dates: start: 20110810
  3. FLOLAN [Concomitant]
     Active Substance: EPOPROSTENOL SODIUM
     Indication: PULMONARY ARTERIAL HYPERTENSION
     Dosage: 1 DF, QD
     Route: 042
     Dates: start: 20110314, end: 20110605
  4. PIMOBENDAN [Concomitant]
     Active Substance: PIMOBENDAN
     Dosage: UNK
     Route: 048
     Dates: start: 20110409
  5. ACARDI [Concomitant]
     Dosage: UNK
     Route: 048
     Dates: start: 20031006, end: 20110408
  6. FAMOTIDINE. [Concomitant]
     Active Substance: FAMOTIDINE
     Dosage: UNK
     Route: 048
     Dates: start: 20110409
  7. OXYGEN. [Concomitant]
     Active Substance: OXYGEN
  8. AMBRISENTAN [Suspect]
     Active Substance: AMBRISENTAN
     Dosage: 5 MG, BID
     Route: 048
     Dates: start: 20110414, end: 20110722
  9. FLUITRAN [Concomitant]
     Active Substance: TRICHLORMETHIAZIDE
     Dosage: UNK
     Route: 048
  10. LUPRAC [Concomitant]
     Active Substance: TORSEMIDE
     Dosage: UNK
     Route: 048
  11. AMBRISENTAN [Suspect]
     Active Substance: AMBRISENTAN
     Dosage: 2.5 MG, BID
     Route: 048
     Dates: start: 20110326, end: 20110402
  12. AMBRISENTAN [Suspect]
     Active Substance: AMBRISENTAN
     Dosage: 5 MG, BID
     Route: 048
     Dates: start: 20110403, end: 20110413
  13. AMBRISENTAN [Suspect]
     Active Substance: AMBRISENTAN
     Dosage: 5 MG, BID
     Route: 048
     Dates: start: 20110723, end: 20110823
  14. ZANTAC [Concomitant]
     Active Substance: RANITIDINE HYDROCHLORIDE
     Dosage: UNK
     Route: 048
     Dates: start: 20100817, end: 20110408
  15. FUROSEMIDE. [Concomitant]
     Active Substance: FUROSEMIDE
     Dosage: UNK
     Route: 065
     Dates: start: 20110720
  16. AMBRISENTAN [Suspect]
     Active Substance: AMBRISENTAN
     Dosage: 2.5 MG, QD
     Dates: start: 20110824
  17. FLOLAN [Concomitant]
     Active Substance: EPOPROSTENOL SODIUM
     Dosage: 1 DF, QD
     Route: 042
     Dates: start: 20110606
  18. REVATIO [Concomitant]
     Active Substance: SILDENAFIL CITRATE
     Indication: PULMONARY ARTERIAL HYPERTENSION
     Dosage: UNK
     Route: 048
     Dates: start: 20080421
  19. AMBRISENTAN [Suspect]
     Active Substance: AMBRISENTAN
     Indication: PULMONARY ARTERIAL HYPERTENSION
     Dosage: 2.5 MG, QD
     Route: 048
     Dates: start: 20110315, end: 20110325
  20. ALDACTONE [Concomitant]
     Active Substance: SPIRONOLACTONE
     Dosage: UNK
     Route: 048
  21. GASMOTIN [Concomitant]
     Active Substance: MOSAPRIDE CITRATE
     Dosage: UNK
     Route: 048
     Dates: start: 20031018

REACTIONS (2)
  - Oedema [Recovering/Resolving]
  - Cardiac failure [Recovering/Resolving]

NARRATIVE: CASE EVENT DATE: 20110714
